FAERS Safety Report 4562098-X (Version None)
Quarter: 2005Q1

REPORT INFORMATION
  Report Type: 
  Country: None (occurrence: None)
  Receive Date: 20050121
  Receipt Date: 20050103
  Transmission Date: 20050727
  Serious: Yes (Hospitalization)
  Sender: FDA-Public Use
  Company Number: 207755

PATIENT
  Age: 41 Year
  Sex: Female

DRUGS (15)
  1. AVONEX [Suspect]
     Indication: MULTIPLE SCLEROSIS
     Dosage: IM
     Route: 030
  2. SYNTHROID [Concomitant]
  3. DDAVP [Concomitant]
  4. CORTEF [Concomitant]
  5. ESTROGEN [Concomitant]
  6. FLORINEF [Concomitant]
  7. NUTROPIN [Concomitant]
  8. PREMPHASE 14/14 [Concomitant]
  9. TRICOR [Concomitant]
  10. LIPITOR [Concomitant]
  11. DETROL LA [Concomitant]
  12. NEURONTIN [Concomitant]
  13. NAPROXEN [Concomitant]
  14. ACTONEL [Concomitant]
  15. VITAMIN [Concomitant]

REACTIONS (2)
  - CHOLECYSTECTOMY [None]
  - HYPOPITUITARISM [None]
